FAERS Safety Report 11003452 (Version 1)
Quarter: 2015Q2

REPORT INFORMATION
  Report Type: Spontaneous
  Country: US (occurrence: None)
  Receive Date: 20150408
  Receipt Date: 20150408
  Transmission Date: 20150821
  Serious: Yes (Life-Threatening, Hospitalization)
  Sender: FDA-Public Use
  Company Number: None

PATIENT
  Age: 71 Year
  Sex: Female
  Weight: 57.8 kg

DRUGS (7)
  1. PROLIA [Concomitant]
     Active Substance: DENOSUMAB
  2. OLAPARIB [Suspect]
     Active Substance: OLAPARIB
     Indication: MALIGNANT PERITONEAL NEOPLASM
     Dates: start: 20150330
  3. METFORMIN [Concomitant]
     Active Substance: METFORMIN HYDROCHLORIDE
  4. FOLATE [Concomitant]
     Active Substance: FOLATE SODIUM
  5. BYL719 [Suspect]
     Active Substance: ALPELISIB
     Indication: MALIGNANT PERITONEAL NEOPLASM
     Dates: start: 20150330
  6. GLYBURIDE. [Concomitant]
     Active Substance: GLYBURIDE
  7. VITAMIN D [Concomitant]
     Active Substance: CHOLECALCIFEROL

REACTIONS (8)
  - Vomiting [None]
  - Non-cardiac chest pain [None]
  - Acute kidney injury [None]
  - Nausea [None]
  - Back pain [None]
  - Blood glucose increased [None]
  - Chest pain [None]
  - Hyperglycaemia [None]

NARRATIVE: CASE EVENT DATE: 20150404
